FAERS Safety Report 7647988-3 (Version None)
Quarter: 2011Q3

REPORT INFORMATION
  Report Type: 
  Country: None (occurrence: None)
  Receive Date: 20110801
  Receipt Date: 20110726
  Transmission Date: 20111222
  Serious: Yes (Death, Life-Threatening, Hospitalization)
  Sender: FDA-Public Use
  Company Number: JP-ABBOTT-11P-087-0733456-00

PATIENT
  Sex: Female
  Weight: 43 kg

DRUGS (9)
  1. FAMOTIDINE [Concomitant]
     Indication: CROHN'S DISEASE
     Dosage: 40MG DAILY
     Route: 048
     Dates: end: 20110609
  2. MORPHINE HYDROCHLORIDE HYDRATE [Concomitant]
     Indication: CROHN'S DISEASE
  3. HUMIRA [Suspect]
     Dates: start: 20110315, end: 20110607
  4. FENTANYL [Concomitant]
     Indication: CROHN'S DISEASE
  5. HUMIRA [Suspect]
     Dates: start: 20110301, end: 20110301
  6. FENTANYL [Concomitant]
     Indication: PAIN
     Route: 062
     Dates: end: 20110609
  7. HUMIRA [Suspect]
     Indication: CROHN'S DISEASE
     Route: 058
     Dates: start: 20110215, end: 20110215
  8. MESALAMINE [Concomitant]
     Indication: CROHN'S DISEASE
     Dosage: 1500MG DAILY
     Route: 048
     Dates: end: 20110609
  9. MORPHINE HYDROCHLORIDE HYDRATE [Concomitant]
     Indication: PAIN
     Dosage: 20MG DAILY AS NEEDED
     Route: 048
     Dates: end: 20110609

REACTIONS (6)
  - PNEUMONIA [None]
  - RESPIRATORY FAILURE [None]
  - DISSEMINATED INTRAVASCULAR COAGULATION [None]
  - MULTI-ORGAN FAILURE [None]
  - SEPSIS [None]
  - ABDOMINAL PAIN [None]
